FAERS Safety Report 8176569-0 (Version None)
Quarter: 2012Q1

REPORT INFORMATION
  Report Type: 
  Country: None (occurrence: None)
  Receive Date: 20120301
  Receipt Date: 20120222
  Transmission Date: 20120608
  Serious: Yes (Hospitalization)
  Sender: FDA-Public Use
  Company Number: JP-SANOFI-AVENTIS-2012SA012903

PATIENT
  Age: 63 Year
  Sex: Female
  Weight: 58.5 kg

DRUGS (2)
  1. DOCETAXEL [Suspect]
     Dosage: GIVEN FOR TOTAL OF 6 CYCLES
     Route: 065
     Dates: start: 20101201
  2. THERAPEUTIC RADIOPHARMACEUTICALS [Suspect]
     Dosage: 40 GY (2 GY IN 20 TIMES)
     Route: 065
     Dates: start: 20101101

REACTIONS (3)
  - DYSARTHRIA [None]
  - PROTHROMBIN TIME SHORTENED [None]
  - HAEMORRHAGE INTRACRANIAL [None]
